FAERS Safety Report 8055692-5 (Version None)
Quarter: 2011Q4

REPORT INFORMATION
  Report Type: 
  Country: None (occurrence: None)
  Receive Date: 20111215
  Receipt Date: 20101227
  Transmission Date: 20120403
  Serious: Yes (Hospitalization)
  Sender: FDA-Public Use
  Company Number: WAES 1012USA03889

PATIENT
  Age: 56 Year
  Sex: Male

DRUGS (7)
  1. ATAZANAVIR [Suspect]
     Indication: HIV INFECTION
     Dates: start: 20080101, end: 20080101
  2. DARUNAVIR UNK [Suspect]
     Indication: HIV INFECTION
     Dates: start: 20090501
  3. RITONAVIR [Suspect]
     Indication: HIV INFECTION
     Dates: start: 20080101
  4. TRUVADA [Suspect]
     Indication: HIV INFECTION
     Dates: start: 20080101
  5. VALTREX [Concomitant]
  6. CELEXA [Concomitant]
  7. ISENTRESS [Suspect]
     Indication: HIV INFECTION
     Dates: start: 20090501

REACTIONS (1)
  - RENAL FAILURE ACUTE [None]
